FAERS Safety Report 6077990-7 (Version None)
Quarter: 2009Q1

REPORT INFORMATION
  Report Type: 
  Country: None (occurrence: None)
  Receive Date: 20090213
  Receipt Date: 20090206
  Transmission Date: 20090719
  Serious: Yes (Other)
  Sender: FDA-Public Use
  Company Number: GB-ELI_LILLY_AND_COMPANY-GB200902001711

PATIENT
  Age: 34 Year
  Sex: Female

DRUGS (2)
  1. FLUOXETINE HCL [Suspect]
     Dosage: 20 MG, UNK
     Route: 048
     Dates: start: 20050101
  2. RISPERDAL CONSTA [Concomitant]
     Indication: PSYCHOTIC DISORDER
     Dosage: 25 MG, UNK
     Route: 030
     Dates: start: 20070701, end: 20081101

REACTIONS (4)
  - HEADACHE [None]
  - HYPERPROLACTINAEMIA [None]
  - OPTIC NEURITIS [None]
  - VISION BLURRED [None]
